FAERS Safety Report 8576103-7 (Version None)
Quarter: 2012Q3

REPORT INFORMATION
  Report Type: 
  Country: None (occurrence: None)
  Receive Date: 20120807
  Receipt Date: 20120727
  Transmission Date: 20120928
  Serious: Yes (Disabling, Other)
  Sender: FDA-Public Use
  Company Number: GB-TEVA-351753ISR

PATIENT
  Age: 57 Year
  Sex: Female

DRUGS (2)
  1. BLOOD PRESSURE MEDICATIONS [Concomitant]
  2. LEVOTHYROXINE SODIUM [Suspect]
     Route: 048
     Dates: end: 20120501

REACTIONS (3)
  - ARTHRALGIA [None]
  - FATIGUE [None]
  - JOINT SWELLING [None]
